FAERS Safety Report 22789463 (Version 3)
Quarter: 2023Q4

REPORT INFORMATION
  Report Type: Report from Study
  Country: US (occurrence: US)
  Receive Date: 20230804
  Receipt Date: 20231122
  Transmission Date: 20240109
  Serious: Yes (Other)
  Sender: FDA-Public Use
  Company Number: US-ABBVIE-5353867

PATIENT
  Sex: Female

DRUGS (1)
  1. RINVOQ [Suspect]
     Active Substance: UPADACITINIB
     Indication: Psoriatic arthropathy
     Route: 048
     Dates: start: 20230420

REACTIONS (10)
  - Seizure [Unknown]
  - Fall [Unknown]
  - Psoriasis [Not Recovered/Not Resolved]
  - Back pain [Unknown]
  - Skin plaque [Not Recovered/Not Resolved]
  - Head injury [Unknown]
  - Lethargy [Unknown]
  - Stress [Not Recovered/Not Resolved]
  - Asthenia [Unknown]
  - Fatigue [Unknown]

NARRATIVE: CASE EVENT DATE: 20230101
